FAERS Safety Report 25984501 (Version 1)
Quarter: 2025Q4

REPORT INFORMATION
  Report Type: Spontaneous
  Country: US (occurrence: US)
  Receive Date: 20251031
  Receipt Date: 20251031
  Transmission Date: 20260117
  Serious: Yes (Hospitalization)
  Sender: BAXTER
  Company Number: US-MLMSERVICE-20251016-PI679636-00299-1

PATIENT
  Age: 64 Year
  Sex: Male

DRUGS (4)
  1. INSULIN NOS [Suspect]
     Active Substance: INSULIN NOS
     Indication: Diabetic ketoacidosis
     Dosage: BASAL BOLUS
     Route: 065
  2. INSULIN NOS [Suspect]
     Active Substance: INSULIN NOS
     Dosage: REGULAR INSULIN INFUSION
     Route: 065
  3. SODIUM CHLORIDE [Suspect]
     Active Substance: SODIUM CHLORIDE
     Indication: Diabetic ketoacidosis
     Dosage: 1 L, 1X AN HOUR
     Route: 042
  4. SODIUM CHLORIDE [Suspect]
     Active Substance: SODIUM CHLORIDE
     Dosage: 1 L, 1X AN HOUR, D5 1/2
     Route: 042

REACTIONS (2)
  - Scrotal oedema [Recovered/Resolved]
  - Treatment noncompliance [Unknown]
